FAERS Safety Report 6673278-1 (Version None)
Quarter: 2010Q2

REPORT INFORMATION
  Report Type: 
  Country: None (occurrence: None)
  Receive Date: 20100408
  Receipt Date: 20100331
  Transmission Date: 20101027
  Serious: Yes (Other)
  Sender: FDA-Public Use
  Company Number: JP-ROCHE-672319

PATIENT
  Sex: Male
  Weight: 55 kg

DRUGS (7)
  1. AVASTIN [Suspect]
     Indication: RECTAL CANCER METASTATIC
     Route: 041
     Dates: start: 20080423, end: 20080423
  2. ELPLAT [Suspect]
     Indication: RECTAL CANCER METASTATIC
     Route: 041
     Dates: start: 20080423, end: 20080423
  3. FLUOROURACIL [Suspect]
     Indication: RECTAL CANCER METASTATIC
     Dosage: ROUTE: INTRAVENOUS BOLUS
     Route: 040
     Dates: start: 20080423, end: 20080423
  4. FLUOROURACIL [Suspect]
     Dosage: ROUTE INTRAVENOUS DRIP
     Route: 040
     Dates: start: 20080423, end: 20080425
  5. ISOVORIN [Suspect]
     Indication: RECTAL CANCER METASTATIC
     Route: 041
     Dates: start: 20080423, end: 20080423
  6. DEXART [Concomitant]
     Route: 041
     Dates: start: 20080423, end: 20080423
  7. KYTRIL [Concomitant]
     Route: 041
     Dates: start: 20080423, end: 20080423

REACTIONS (2)
  - ALTERED STATE OF CONSCIOUSNESS [None]
  - MALAISE [None]
